FAERS Safety Report 11694298 (Version 1)
Quarter: 2015Q4

REPORT INFORMATION
  Report Type: Spontaneous
  Country: US (occurrence: US)
  Receive Date: 20151103
  Receipt Date: 20151103
  Transmission Date: 20160304
  Serious: Yes (Other)
  Sender: FDA-Public Use
  Company Number: US-BAYER-2015-454696

PATIENT
  Age: 89 Year
  Sex: Male
  Weight: 68.27 kg

DRUGS (1)
  1. MIRALAX [Suspect]
     Active Substance: POLYETHYLENE GLYCOL 3350
     Indication: GASTROINTESTINAL MOTILITY DISORDER
     Dosage: 1 DF, QOD
     Route: 048
     Dates: start: 201503

REACTIONS (6)
  - Expired product administered [None]
  - Diarrhoea [None]
  - Dyspepsia [None]
  - Drug ineffective for unapproved indication [None]
  - Product use issue [None]
  - Chromaturia [None]
